FAERS Safety Report 7794400-X (Version None)
Quarter: 2011Q3

REPORT INFORMATION
  Report Type: 
  Country: None (occurrence: None)
  Receive Date: 20110929
  Receipt Date: 20110923
  Transmission Date: 20111222
  Serious: Yes (Death)
  Sender: FDA-Public Use
  Company Number: LEO-2011-00757

PATIENT
  Age: 29 Year
  Sex: Male
  Weight: 95 kg

DRUGS (1)
  1. INNOHEP [Suspect]
     Indication: EMBOLISM VENOUS
     Dosage: 1800 IU (1800 IU, 1 IN 1 D) SUBCUTANEOUS
     Route: 058
     Dates: start: 20110518

REACTIONS (7)
  - RESPIRATORY FAILURE [None]
  - NEOPLASM PROGRESSION [None]
  - CIRCULATORY COLLAPSE [None]
  - DEEP VEIN THROMBOSIS [None]
  - SUDDEN DEATH [None]
  - TESTIS CANCER [None]
  - DYSPNOEA [None]
